FAERS Safety Report 23979126 (Version 2)
Quarter: 2024Q3

REPORT INFORMATION
  Report Type: Spontaneous
  Country: IT (occurrence: IT)
  Receive Date: 20240615
  Receipt Date: 20240924
  Transmission Date: 20241017
  Serious: Yes (Hospitalization, Other)
  Sender: ACCORD
  Company Number: IT-BRISTOL-MYERS SQUIBB COMPANY-2024-066928

PATIENT
  Age: 74 Year
  Sex: Male

DRUGS (4)
  1. APIXABAN [Suspect]
     Active Substance: APIXABAN
     Indication: Atrial fibrillation
     Dosage: 5 MILLIGRAM, BID
  2. LEVOTHYROXINE [Concomitant]
     Active Substance: LEVOTHYROXINE\LEVOTHYROXINE SODIUM
     Indication: Hypothyroidism
  3. BISOPROLOL [Concomitant]
     Active Substance: BISOPROLOL\BISOPROLOL FUMARATE
     Indication: Atrial fibrillation
  4. VALSARTAN [Concomitant]
     Active Substance: VALSARTAN
     Indication: Atrial fibrillation

REACTIONS (2)
  - Acute kidney injury [Recovered/Resolved]
  - Drug-induced liver injury [Recovered/Resolved]
